FAERS Safety Report 5925684-8 (Version None)
Quarter: 2008Q4

REPORT INFORMATION
  Report Type: 
  Country: None (occurrence: None)
  Receive Date: 20081016
  Receipt Date: 20080929
  Transmission Date: 20090506
  Serious: Yes (Hospitalization, Disabling)
  Sender: FDA-Public Use
  Company Number: 8036779

PATIENT
  Age: 18 Year
  Sex: Male
  Weight: 72 kg

DRUGS (5)
  1. KEPPRA [Suspect]
     Indication: ATTENTION DEFICIT/HYPERACTIVITY DISORDER
     Dosage: 500 MG/ D PO
     Route: 048
     Dates: start: 20080501
  2. KEPPRA [Suspect]
     Indication: EPILEPSY
     Dosage: 500 MG/ D PO
     Route: 048
     Dates: start: 20080501
  3. KEPPRA [Suspect]
     Indication: ATTENTION DEFICIT/HYPERACTIVITY DISORDER
     Dosage: PO
     Route: 048
     Dates: end: 20080922
  4. KEPPRA [Suspect]
     Indication: EPILEPSY
     Dosage: PO
     Route: 048
     Dates: end: 20080922
  5. TOPAMAX [Concomitant]

REACTIONS (9)
  - AGGRESSION [None]
  - DRUG DOSE OMISSION [None]
  - EDUCATIONAL PROBLEM [None]
  - GRAND MAL CONVULSION [None]
  - INAPPROPRIATE SCHEDULE OF DRUG ADMINISTRATION [None]
  - MEMORY IMPAIRMENT [None]
  - MOOD SWINGS [None]
  - PHYSICAL EXAMINATION ABNORMAL [None]
  - TREATMENT NONCOMPLIANCE [None]
